FAERS Safety Report 6895257-1 (Version None)
Quarter: 2010Q3

REPORT INFORMATION
  Report Type: 
  Country: None (occurrence: None)
  Receive Date: 20100728
  Receipt Date: 20100720
  Transmission Date: 20110219
  Serious: Yes (Disabling, Other)
  Sender: FDA-Public Use
  Company Number: DSA_42810_2010

PATIENT
  Sex: Male

DRUGS (12)
  1. XENAZINE [Suspect]
     Indication: HUNTINGTON'S DISEASE
     Dosage: (12.5 MG BID ORAL)
     Route: 048
     Dates: start: 20100308, end: 20100510
  2. HALOPERIDOL [Concomitant]
  3. TRAZODONE [Concomitant]
  4. XANAX [Concomitant]
  5. PLAVIX [Concomitant]
  6. LORATADINE [Concomitant]
  7. DIGOXIN [Concomitant]
  8. ASPIRIN [Concomitant]
  9. PRAVACHOL [Concomitant]
  10. ZETIA [Concomitant]
  11. BYSTOLIC [Concomitant]
  12. LISINOPRIL [Concomitant]

REACTIONS (22)
  - AGITATION [None]
  - ANXIETY [None]
  - BALANCE DISORDER [None]
  - CONDITION AGGRAVATED [None]
  - CONFUSIONAL STATE [None]
  - DEPRESSION [None]
  - DISTURBANCE IN ATTENTION [None]
  - FATIGUE [None]
  - FEELING ABNORMAL [None]
  - IMPAIRED DRIVING ABILITY [None]
  - INITIAL INSOMNIA [None]
  - LACK OF SPONTANEOUS SPEECH [None]
  - MEMORY IMPAIRMENT [None]
  - MENTAL STATUS CHANGES [None]
  - MIDDLE INSOMNIA [None]
  - OBSESSIVE THOUGHTS [None]
  - SEDATION [None]
  - SELF INJURIOUS BEHAVIOUR [None]
  - SOMNOLENCE [None]
  - STRESS [None]
  - UNEMPLOYMENT [None]
  - UNEVALUABLE EVENT [None]
